FAERS Safety Report 26068509 (Version 2)
Quarter: 2025Q4

REPORT INFORMATION
  Report Type: Spontaneous
  Country: US (occurrence: US)
  Receive Date: 20251120
  Receipt Date: 20251127
  Transmission Date: 20260119
  Serious: No
  Sender: ASTELLAS
  Company Number: US-ASTELLAS-2025-AER-062871

PATIENT

DRUGS (1)
  1. AMBISOME [Suspect]
     Active Substance: AMPHOTERICIN B
     Indication: Product used for unknown indication
     Route: 065

REACTIONS (2)
  - Product container issue [Unknown]
  - No adverse event [Unknown]
